FAERS Safety Report 5235452-0 (Version None)
Quarter: 2007Q1

REPORT INFORMATION
  Report Type: 
  Country: None (occurrence: None)
  Receive Date: 20070212
  Receipt Date: 20070206
  Transmission Date: 20070707
  Serious: Yes (Hospitalization)
  Sender: FDA-Public Use
  Company Number: ES-BRISTOL-MYERS SQUIBB COMPANY-13655840

PATIENT
  Age: 34 Year
  Sex: Male

DRUGS (3)
  1. REYATAZ [Suspect]
     Indication: HIV INFECTION
     Dosage: INTERRUPTED ON 31-DEC-2006 AND SUBSEQUENTLY RESTARTED.
     Route: 048
     Dates: start: 20060125
  2. NORVIR [Suspect]
     Dosage: INTERRUPTED ON 31-DEC-2006 AND SUBSEQUENTLY RESTARTED.
     Dates: start: 20060125
  3. COMBIVIR [Suspect]
     Dosage: INTERRUPTED ON 31-DEC-2006 AND SUBSEQUENTLY RESTARTED.
     Dates: start: 20060125

REACTIONS (1)
  - CHOLECYSTITIS [None]
